FAERS Safety Report 21057395 (Version 4)
Quarter: 2022Q3

REPORT INFORMATION
  Report Type: Spontaneous
  Country: US (occurrence: US)
  Receive Date: 20220708
  Receipt Date: 20220923
  Transmission Date: 20221027
  Serious: Yes (Death, Other)
  Sender: FDA-Public Use
  Company Number: US-JNJFOC-20220700069

PATIENT
  Age: 26 Year
  Sex: Female

DRUGS (11)
  1. SPRAVATO [Suspect]
     Active Substance: ESKETAMINE
     Indication: Depression
     Dosage: ^56 MG, 8 TOTAL DOSES^
     Dates: start: 20220203, end: 20220224
  2. SPRAVATO [Suspect]
     Active Substance: ESKETAMINE
     Indication: Major depression
     Dosage: ^84 MG, 25 TOTAL DOSES^
     Dates: start: 20220303, end: 20220603
  3. PRISTIQ EXTENDED-RELEASE [Concomitant]
     Active Substance: DESVENLAFAXINE SUCCINATE
  4. CLOZAPINE [Concomitant]
     Active Substance: CLOZAPINE
  5. LAMOTRIGINE [Concomitant]
     Active Substance: LAMOTRIGINE
  6. ATIVAN [Concomitant]
     Active Substance: LORAZEPAM
  7. DESVENLAFAXINE [Concomitant]
     Active Substance: DESVENLAFAXINE
  8. OLANZAPINE [Concomitant]
     Active Substance: OLANZAPINE
  9. LEVETIRACETAM [Concomitant]
     Active Substance: LEVETIRACETAM
     Indication: Seizure
  10. LORAZEPAM [Concomitant]
     Active Substance: LORAZEPAM
     Dosage: AS REQUIRED
  11. VYVANSE [Concomitant]
     Active Substance: LISDEXAMFETAMINE DIMESYLATE

REACTIONS (3)
  - Completed suicide [Fatal]
  - Hallucination, auditory [Fatal]
  - Major depression [Unknown]

NARRATIVE: CASE EVENT DATE: 20220101
